FAERS Safety Report 8452612-6 (Version None)
Quarter: 2012Q2

REPORT INFORMATION
  Report Type: 
  Country: None (occurrence: None)
  Receive Date: 20120620
  Receipt Date: 20120420
  Transmission Date: 20120825
  Serious: No
  Sender: FDA-Public Use
  Company Number: US-VERTEX PHARMACEUTICALS INC.-AE-2012-005688

PATIENT
  Sex: Male
  Weight: 81.72 kg

DRUGS (6)
  1. INCIVEK [Suspect]
     Indication: HEPATITIS C
     Route: 048
     Dates: start: 20120418
  2. PEGASYS [Concomitant]
     Indication: HEPATITIS C
     Dates: start: 20120418
  3. RIBAVIRIN [Concomitant]
     Indication: HEPATITIS C
     Dates: start: 20120418
  4. ANDROGEL [Concomitant]
  5. ACETAMINOPHEN [Concomitant]
     Dates: start: 20120418
  6. ZOLOFT [Concomitant]

REACTIONS (4)
  - PYREXIA [None]
  - FATIGUE [None]
  - CHILLS [None]
  - MYALGIA [None]
